FAERS Safety Report 6490761-2 (Version None)
Quarter: 2009Q4

REPORT INFORMATION
  Report Type: 
  Country: None (occurrence: None)
  Receive Date: 20091211
  Receipt Date: 20091204
  Transmission Date: 20100525
  Serious: Yes (Other)
  Sender: FDA-Public Use
  Company Number: US-SANOFI-AVENTIS-2009SA007600

PATIENT
  Age: 34 Year
  Sex: Female

DRUGS (2)
  1. AMBIEN [Suspect]
     Route: 065
     Dates: start: 20080601
  2. TRAMADOL HCL [Suspect]
     Route: 065

REACTIONS (4)
  - IMPAIRED DRIVING ABILITY [None]
  - ROAD TRAFFIC ACCIDENT [None]
  - STUPOR [None]
  - WRONG DRUG ADMINISTERED [None]
